FAERS Safety Report 7532395-4 (Version None)
Quarter: 2011Q2

REPORT INFORMATION
  Report Type: 
  Country: None (occurrence: None)
  Receive Date: 20110607
  Receipt Date: 20110607
  Transmission Date: 20111010
  Serious: No
  Sender: FDA-Public Use
  Company Number: None

PATIENT
  Sex: Female
  Weight: 99.5 kg

DRUGS (2)
  1. OMEPRAZOLE [Suspect]
     Dosage: 1 QD PO
     Route: 048
     Dates: start: 20110131, end: 20110301
  2. PREVACID [Suspect]
     Indication: BARRETT'S OESOPHAGUS
     Dosage: 1 QD PO
     Route: 048
     Dates: start: 20110301, end: 20110501

REACTIONS (3)
  - DRUG INEFFECTIVE [None]
  - HEADACHE [None]
  - ABDOMINAL DISCOMFORT [None]
